FAERS Safety Report 12853917 (Version 2)
Quarter: 2017Q2

REPORT INFORMATION
  Report Type: Spontaneous
  Country: GB (occurrence: GB)
  Receive Date: 20161017
  Receipt Date: 20170626
  Transmission Date: 20170830
  Serious: Yes (Other)
  Sender: FDA-Public Use
  Company Number: GB-SA-2016SA187007

PATIENT
  Age: 22 Year
  Sex: Female

DRUGS (1)
  1. ARAVA [Suspect]
     Active Substance: LEFLUNOMIDE
     Route: 048

REACTIONS (5)
  - Rheumatoid arthritis [Unknown]
  - Postpartum haemorrhage [Unknown]
  - Uterine atony [Unknown]
  - Vaginal laceration [Unknown]
  - Exposure during pregnancy [Unknown]
